FAERS Safety Report 14770223 (Version 1)
Quarter: 2018Q2

REPORT INFORMATION
  Report Type: Report from Study
  Country: None (occurrence: IE)
  Receive Date: 20180417
  Receipt Date: 20180417
  Transmission Date: 20180711
  Serious: Yes (Other)
  Sender: FDA-Public Use
  Company Number: IE-ABBVIE-18P-229-2322602-00

PATIENT
  Age: 63 Year
  Sex: Female

DRUGS (2)
  1. VENCLYXTO [Suspect]
     Active Substance: VENETOCLAX
     Indication: MANTLE CELL LYMPHOMA
     Route: 048
     Dates: start: 201803
  2. VENCLYXTO [Suspect]
     Active Substance: VENETOCLAX
     Route: 048
     Dates: end: 201804

REACTIONS (2)
  - Off label use [Unknown]
  - Device related sepsis [Not Recovered/Not Resolved]

NARRATIVE: CASE EVENT DATE: 201804
